FAERS Safety Report 10549307 (Version 3)
Quarter: 2014Q4

REPORT INFORMATION
  Report Type: Spontaneous
  Country: JP (occurrence: JP)
  Receive Date: 20141028
  Receipt Date: 20141203
  Transmission Date: 20150529
  Serious: Yes (Disabling, Other)
  Sender: FDA-Public Use
  Company Number: JP-GLAXOSMITHKLINE-A201410375

PATIENT
  Age: 43 Year
  Sex: Female

DRUGS (11)
  1. LONASEN [Concomitant]
     Active Substance: BLONANSERIN
     Dosage: UNK
  2. RIVOTRIL [Concomitant]
     Active Substance: CLONAZEPAM
     Indication: AUTONOMIC SEIZURE
     Dosage: 0.5 MG, QD
     Dates: start: 20130105, end: 20140916
  3. LENDORMIN [Concomitant]
     Active Substance: BROTIZOLAM
     Indication: INSOMNIA
     Dosage: 0.25 MG, QD
     Dates: start: 20140415, end: 20140916
  4. CHINESE MEDICINE [Concomitant]
     Active Substance: UNSPECIFIED INGREDIENT
     Indication: INSOMNIA
     Dosage: 2.5 G, QD
     Dates: start: 20140126, end: 20140916
  5. LAMOTRIGINE. [Suspect]
     Active Substance: LAMOTRIGINE
     Dosage: UNK MG, UNK
     Route: 048
     Dates: start: 20140114, end: 2014
  6. ABILIFY [Concomitant]
     Active Substance: ARIPIPRAZOLE
     Indication: HYPERPHAGIA
     Dosage: 9 MG, QD
     Dates: start: 20140819, end: 20140916
  7. LAMOTRIGINE. [Suspect]
     Active Substance: LAMOTRIGINE
     Indication: BIPOLAR II DISORDER
     Dosage: UNK UNK, QD
     Route: 048
     Dates: start: 20130126
  8. TOPINA [Concomitant]
     Active Substance: TOPIRAMATE
     Indication: HYPERPHAGIA
     Dosage: 100 MG, QD
     Dates: start: 20120414, end: 20140916
  9. ZYPREXA [Concomitant]
     Active Substance: OLANZAPINE
     Dosage: UNK
     Dates: start: 20140114, end: 20140128
  10. LAMOTRIGINE. [Suspect]
     Active Substance: LAMOTRIGINE
     Dosage: 225 MG, QD
     Route: 048
     Dates: start: 2014, end: 20140609
  11. LAMOTRIGINE. [Suspect]
     Active Substance: LAMOTRIGINE
     Dosage: 100 MG, QD
     Route: 048
     Dates: start: 20140610, end: 20140916

REACTIONS (12)
  - Abnormal behaviour [Unknown]
  - Amnesia [Recovering/Resolving]
  - Hyperkinesia [Unknown]
  - Sedation [Unknown]
  - Cognitive disorder [Unknown]
  - Insomnia [Unknown]
  - Mania [Unknown]
  - Circadian rhythm sleep disorder [Unknown]
  - Hyperphagia [Unknown]
  - Bipolar I disorder [Unknown]
  - Depression [Unknown]
  - Feeling abnormal [Unknown]

NARRATIVE: CASE EVENT DATE: 20130917
